FAERS Safety Report 18540220 (Version 2)
Quarter: 2020Q4

REPORT INFORMATION
  Report Type: Spontaneous
  Country: PT (occurrence: PT)
  Receive Date: 20201124
  Receipt Date: 20201201
  Transmission Date: 20210114
  Serious: Yes (Other)
  Sender: FDA-Public Use
  Company Number: PT-GILEAD-2020-0505265

PATIENT
  Age: 92 Year
  Sex: Female
  Weight: 44 kg

DRUGS (7)
  1. ENOXAPARIN SODIUM. [Concomitant]
     Active Substance: ENOXAPARIN SODIUM
  2. PARACETAMOL [Concomitant]
     Active Substance: ACETAMINOPHEN
  3. CLONIDINE. [Concomitant]
     Active Substance: CLONIDINE
  4. HYDROXYZINE [Concomitant]
     Active Substance: HYDROXYZINE HYDROCHLORIDE
  5. VEKLURY [Suspect]
     Active Substance: REMDESIVIR
     Dosage: 100 MG, QD
     Route: 042
     Dates: start: 20201031, end: 20201102
  6. BISACODYL. [Concomitant]
     Active Substance: BISACODYL
  7. VEKLURY [Suspect]
     Active Substance: REMDESIVIR
     Indication: COVID-19 TREATMENT
     Dosage: 200MG NO DIA 1 E 100MG NOS RESTANTES
     Route: 042
     Dates: start: 20201030, end: 20201030

REACTIONS (2)
  - Blood potassium increased [Recovered/Resolved]
  - Blood creatinine increased [Recovered/Resolved]

NARRATIVE: CASE EVENT DATE: 20201031
